FAERS Safety Report 15551879 (Version 1)
Quarter: 2018Q4

REPORT INFORMATION
  Report Type: Spontaneous
  Country: DO (occurrence: DO)
  Receive Date: 20181025
  Receipt Date: 20181025
  Transmission Date: 20190205
  Serious: Yes (Other)
  Sender: FDA-Public Use
  Company Number: DO-BAYER-2018-195624

PATIENT
  Age: 82 Year

DRUGS (1)
  1. ADEMPAS [Suspect]
     Active Substance: RIOCIGUAT
     Dosage: 1 MG, QD
     Route: 048
     Dates: start: 20181010

REACTIONS (3)
  - Syncope [None]
  - Dyspnoea [None]
  - Blood glucose decreased [None]
